FAERS Safety Report 22074723 (Version 1)
Quarter: 2023Q1

REPORT INFORMATION
  Report Type: Spontaneous
  Country: US (occurrence: US)
  Receive Date: 20230308
  Receipt Date: 20230308
  Transmission Date: 20230418
  Serious: Yes (Other)
  Sender: FDA-Public Use
  Company Number: US-BRISTOL-MYERS SQUIBB COMPANY-2023-031434

PATIENT
  Age: 37 Year
  Sex: Female

DRUGS (2)
  1. REVLIMID [Suspect]
     Active Substance: LENALIDOMIDE
     Indication: Plasma cell myeloma
     Route: 048
  2. REVLIMID [Suspect]
     Active Substance: LENALIDOMIDE
     Route: 048
     Dates: start: 20221201

REACTIONS (5)
  - Neuropathy peripheral [Unknown]
  - Haemorrhage [Unknown]
  - Liver injury [Unknown]
  - Skin lesion [Unknown]
  - Rash [Unknown]

NARRATIVE: CASE EVENT DATE: 20221201
